FAERS Safety Report 5571086-6 (Version None)
Quarter: 2007Q4

REPORT INFORMATION
  Report Type: 
  Country: None (occurrence: None)
  Receive Date: 20071221
  Receipt Date: 20071218
  Transmission Date: 20080405
  Serious: Yes (Hospitalization)
  Sender: FDA-Public Use
  Company Number: US-SANOFI-SYNTHELABO-F01200701686

PATIENT
  Sex: Male
  Weight: 53.6 kg

DRUGS (8)
  1. XOPENEX [Concomitant]
     Dosage: UNK
     Route: 065
  2. COMPAZINE [Concomitant]
     Dosage: UNK
     Route: 065
  3. CELEBREX [Concomitant]
     Dosage: UNK
     Route: 065
  4. HYDROCODONE BITARTRATE [Concomitant]
     Dosage: UNK
     Route: 065
  5. OXYCONTIN [Concomitant]
     Dosage: UNK
     Route: 065
  6. BEVACIZUMAB [Suspect]
     Route: 042
     Dates: start: 20071119, end: 20071119
  7. DOCETAXEL [Suspect]
     Route: 042
     Dates: start: 20071119, end: 20071119
  8. OXALIPLATIN [Suspect]
     Indication: LUNG NEOPLASM MALIGNANT
     Route: 042
     Dates: start: 20071119, end: 20071119

REACTIONS (1)
  - APPENDICITIS [None]
